FAERS Safety Report 10337022 (Version 1)
Quarter: 2014Q3

REPORT INFORMATION
  Report Type: Spontaneous
  Country: US (occurrence: US)
  Receive Date: 20140723
  Receipt Date: 20140723
  Transmission Date: 20150326
  Serious: No
  Sender: FDA-Public Use
  Company Number: US-009507513-1405USA009946

PATIENT
  Sex: Female

DRUGS (9)
  1. CLARITIN [Suspect]
     Active Substance: LORATADINE
     Indication: EYE PRURITUS
  2. CLARITIN [Suspect]
     Active Substance: LORATADINE
     Indication: SINUS HEADACHE
  3. CLARITIN [Suspect]
     Active Substance: LORATADINE
     Indication: RHINORRHOEA
  4. CLARITIN [Suspect]
     Active Substance: LORATADINE
     Indication: SEASONAL ALLERGY
     Dosage: UNK, QD
     Route: 048
  5. CLARITIN [Suspect]
     Active Substance: LORATADINE
     Indication: SNEEZING
  6. CLARITIN [Suspect]
     Active Substance: LORATADINE
     Indication: THROAT IRRITATION
  7. CLARITIN [Suspect]
     Active Substance: LORATADINE
     Indication: HEAD DISCOMFORT
  8. CLARITIN [Suspect]
     Active Substance: LORATADINE
     Indication: SINUS CONGESTION
  9. CLARITIN [Suspect]
     Active Substance: LORATADINE
     Indication: NASAL CONGESTION

REACTIONS (2)
  - Drug effect decreased [Unknown]
  - Therapeutic response changed [Unknown]
